FAERS Safety Report 5053343-5 (Version None)
Quarter: 2006Q3

REPORT INFORMATION
  Report Type: 
  Country: None (occurrence: None)
  Receive Date: 20060712
  Receipt Date: 20060629
  Transmission Date: 20061208
  Serious: Yes (Life-Threatening, Hospitalization)
  Sender: FDA-Public Use
  Company Number: 2006082303

PATIENT
  Age: 65 Year
  Sex: Female
  Weight: 66 kg

DRUGS (3)
  1. SUTENT [Suspect]
     Indication: METASTATIC RENAL CELL CARCINOMA
     Dosage: 50 MG 50 MG, 1 IN 1 D), ORAL
     Route: 048
     Dates: start: 20060531, end: 20060625
  2. OMEPRAZOLE [Concomitant]
  3. ENSURE (AMINO ACIDS NOS, MINERALS NOS, VITAMINS NOS) [Concomitant]

REACTIONS (4)
  - HEPATIC FAILURE [None]
  - RENAL FAILURE [None]
  - THROMBOCYTOPENIA [None]
  - UPPER GASTROINTESTINAL HAEMORRHAGE [None]
